FAERS Safety Report 8531198-1 (Version None)
Quarter: 2012Q3

REPORT INFORMATION
  Report Type: 
  Country: None (occurrence: None)
  Receive Date: 20120723
  Receipt Date: 20120709
  Transmission Date: 20120928
  Serious: Yes (Congenital Anomaly, Other)
  Sender: FDA-Public Use
  Company Number: DE-ELI_LILLY_AND_COMPANY-DE201207003083

PATIENT
  Sex: Female
  Weight: 0.472 kg

DRUGS (10)
  1. AMOXICILLIN [Concomitant]
     Route: 064
  2. FLUOXETINE HCL [Suspect]
     Dosage: UNK UNK, QD
     Route: 064
  3. FOLIC ACID [Concomitant]
     Indication: PROPHYLAXIS OF NEURAL TUBE DEFECT
     Dosage: UNK UNK, QD
     Route: 064
  4. CIPROFLOXACIN [Concomitant]
     Indication: URINARY TRACT INFECTION
     Dosage: UNK UNK, QD
     Route: 064
  5. ACETAMINOPHEN [Concomitant]
     Route: 064
  6. FLUOXETINE HCL [Suspect]
     Indication: DEPRESSION
     Dosage: UNK UNK, QD
     Route: 064
  7. AMOXICILLIN [Concomitant]
     Indication: URINARY TRACT INFECTION
     Route: 064
  8. CIPROFLOXACIN [Concomitant]
     Dosage: UNK UNK, QD
     Route: 064
  9. ACETAMINOPHEN [Concomitant]
     Indication: PYREXIA
     Route: 064
  10. FOLIC ACID [Concomitant]
     Dosage: UNK UNK, QD
     Route: 064

REACTIONS (4)
  - SPINA BIFIDA [None]
  - ARNOLD-CHIARI MALFORMATION [None]
  - HYDROCEPHALUS [None]
  - FOETAL EXPOSURE DURING PREGNANCY [None]
